FAERS Safety Report 16167680 (Version 3)
Quarter: 2019Q4

REPORT INFORMATION
  Report Type: Spontaneous
  Country: NL (occurrence: NL)
  Receive Date: 20190408
  Receipt Date: 20191219
  Transmission Date: 20200122
  Serious: Yes (Hospitalization, Other)
  Sender: FDA-Public Use
  Company Number: NL-GLAXOSMITHKLINE-NL2019059676

PATIENT
  Age: 68 Year
  Sex: Female
  Weight: 85 kg

DRUGS (3)
  1. ATENOLOL. [Concomitant]
     Active Substance: ATENOLOL
     Indication: PRODUCT USED FOR UNKNOWN INDICATION
     Dosage: UNK
     Route: 048
  2. OMEPRAZOL [Suspect]
     Active Substance: OMEPRAZOLE
     Indication: PROPHYLAXIS AGAINST GASTROINTESTINAL ULCER
     Dosage: 1X PER DAY
     Route: 048
     Dates: start: 201811, end: 201903
  3. DICLOFENAC SODIUM. [Suspect]
     Active Substance: DICLOFENAC SODIUM
     Indication: RHEUMATOID ARTHRITIS
     Dosage: UNK
     Route: 050
     Dates: start: 201808

REACTIONS (1)
  - Renal failure [Recovering/Resolving]

NARRATIVE: CASE EVENT DATE: 201902
